FAERS Safety Report 5936816-X (Version None)
Quarter: 2008Q4

REPORT INFORMATION
  Report Type: 
  Country: None (occurrence: None)
  Receive Date: 20081029
  Receipt Date: 20081015
  Transmission Date: 20090506
  Serious: Yes (Death)
  Sender: FDA-Public Use
  Company Number: MEDI-0007208

PATIENT
  Age: 3 Month
  Sex: Male

DRUGS (2)
  1. SYNAGIS [Suspect]
     Indication: PREMATURE BABY
     Dates: start: 20080801, end: 20080930
  2. SYNAGIS [Suspect]
     Indication: PREMATURE BABY
     Dates: start: 20080801

REACTIONS (1)
  - DEATH [None]
